FAERS Safety Report 9188869 (Version 2)
Quarter: 2013Q2

REPORT INFORMATION
  Report Type: Spontaneous
  Country: BG (occurrence: BG)
  Receive Date: 20130326
  Receipt Date: 20130409
  Transmission Date: 20140414
  Serious: Yes (Death)
  Sender: FDA-Public Use
  Company Number: BG-ASTRAZENECA-2013SE18697

PATIENT
  Age: 75 Year
  Sex: Female

DRUGS (10)
  1. BETALOC ZOK [Suspect]
     Indication: CARDIAC FAILURE
     Route: 048
     Dates: start: 201208, end: 201208
  2. BETALOC ZOK [Suspect]
     Indication: CARDIAC FAILURE
     Route: 048
     Dates: start: 201301
  3. ASPIRIN [Concomitant]
  4. METFORMIN [Concomitant]
     Indication: TYPE 2 DIABETES MELLITUS
  5. ARETA [Concomitant]
  6. CARDICET [Concomitant]
  7. TRIFAS [Concomitant]
  8. INSULIN [Concomitant]
  9. CEFTRIAXONE [Concomitant]
  10. SIOFOR [Concomitant]

REACTIONS (1)
  - Depression [Fatal]
